FAERS Safety Report 8351509-X (Version None)
Quarter: 2012Q2

REPORT INFORMATION
  Report Type: 
  Country: None (occurrence: None)
  Receive Date: 20120511
  Receipt Date: 20120427
  Transmission Date: 20120825
  Serious: Yes (Hospitalization, Other)
  Sender: FDA-Public Use
  Company Number: US-MYLANLABS-2009AC000146

PATIENT
  Sex: Female
  Weight: 54.43 kg

DRUGS (16)
  1. ACETAMINOPHEN AND HYDROCODONE BITARTRATE [Concomitant]
  2. METFORMIN HCL [Concomitant]
  3. LISINOPRIL [Concomitant]
  4. ADIPEX-P [Concomitant]
  5. PHENTERMINE [Concomitant]
  6. MAGNESIUM OXIDE [Concomitant]
  7. CADUET [Concomitant]
  8. ACE INHIBITORS [Concomitant]
  9. DIGOXIN [Suspect]
     Route: 048
     Dates: start: 20070613, end: 20090501
  10. SPIRONOLACTONE [Concomitant]
  11. FERROUS GLUCONATE [Concomitant]
  12. COREG [Concomitant]
  13. BIDIL [Concomitant]
  14. ASPIRIN [Concomitant]
  15. FUROSEMIDE [Concomitant]
  16. HYDROCHLOROTHIAZIDE [Concomitant]

REACTIONS (26)
  - NIGHT SWEATS [None]
  - NASAL CONGESTION [None]
  - HYPERTENSIVE EMERGENCY [None]
  - LEFT VENTRICULAR DYSFUNCTION [None]
  - COUGH [None]
  - CHILLS [None]
  - PAIN [None]
  - ILL-DEFINED DISORDER [None]
  - CARDIAC FAILURE CONGESTIVE [None]
  - PYREXIA [None]
  - TRICUSPID VALVE INCOMPETENCE [None]
  - OEDEMA [None]
  - CONGESTIVE CARDIOMYOPATHY [None]
  - MITRAL VALVE INCOMPETENCE [None]
  - CHEST DISCOMFORT [None]
  - ANAEMIA [None]
  - PULMONARY HYPERTENSION [None]
  - CHEST X-RAY ABNORMAL [None]
  - INJURY [None]
  - HYPERTENSION [None]
  - DECREASED APPETITE [None]
  - ECONOMIC PROBLEM [None]
  - DYSPNOEA [None]
  - HYPOTENSION [None]
  - LIP OEDEMA [None]
  - CARDIOMEGALY [None]
